FAERS Safety Report 25084537 (Version 1)
Quarter: 2025Q1

REPORT INFORMATION
  Report Type: Spontaneous
  Country: US (occurrence: US)
  Receive Date: 20250317
  Receipt Date: 20250317
  Transmission Date: 20250409
  Serious: Yes (Other)
  Sender: PFIZER
  Company Number: US-ASTRAZENECA-202410USA012572US

PATIENT
  Sex: Male

DRUGS (4)
  1. VYNDAMAX [Interacting]
     Active Substance: TAFAMIDIS
     Dosage: UNK UNK, 1X/DAY
     Route: 048
  2. CRESTOR [Interacting]
     Active Substance: ROSUVASTATIN CALCIUM
     Indication: Cardiomyopathy
     Dosage: 10 MILLIGRAM, 1/DAY
     Route: 048
  3. METOPROLOL [Suspect]
     Active Substance: METOPROLOL
     Route: 048
  4. TAMSULOSIN [Concomitant]
     Active Substance: TAMSULOSIN

REACTIONS (5)
  - Neuropathy peripheral [Unknown]
  - Drug interaction [Unknown]
  - Drug ineffective [Unknown]
  - Muscular weakness [Unknown]
  - Tremor [Unknown]
